FAERS Safety Report 9095317 (Version 1)
Quarter: 2013Q1

REPORT INFORMATION
  Report Type: Report from Study
  Country: US (occurrence: US)
  Receive Date: 20130201
  Receipt Date: 20130201
  Transmission Date: 20140127
  Serious: No
  Sender: FDA-Public Use
  Company Number: US-ABBOTT-13P-163-1031243-00

PATIENT
  Sex: Male
  Weight: 54.48 kg

DRUGS (6)
  1. HUMIRA [Suspect]
     Indication: SPONDYLOARTHROPATHY
     Dates: start: 2012
  2. PREDNISONE [Concomitant]
     Indication: SPONDYLOARTHROPATHY
  3. METHOTREXATE [Concomitant]
     Indication: SPONDYLOARTHROPATHY
  4. FOLIC ACID [Concomitant]
     Indication: PRODUCT USED FOR UNKNOWN INDICATION
  5. VITAMIN D [Concomitant]
     Indication: PRODUCT USED FOR UNKNOWN INDICATION
  6. UNKNOWN INHALER [Concomitant]
     Indication: ASTHMA

REACTIONS (4)
  - Hypoaesthesia [Recovered/Resolved]
  - Loss of consciousness [Recovered/Resolved]
  - Loss of consciousness [Recovered/Resolved]
  - Pharyngitis [Recovered/Resolved]
